FAERS Safety Report 17070138 (Version 1)
Quarter: 2019Q4

REPORT INFORMATION
  Report Type: Spontaneous
  Country: US (occurrence: US)
  Receive Date: 20191025
  Receipt Date: 20191025
  Transmission Date: 20200122
  Serious: Yes (Death)
  Sender: FDA-Public Use
  Company Number: None

PATIENT
  Age: 54 Year
  Sex: Male

DRUGS (1)
  1. XGEVA [Suspect]
     Active Substance: DENOSUMAB
     Indication: NEOPLASM MALIGNANT
     Dosage: ?          OTHER DOSE:120MG/1.7ML;OTHER FREQUENCY:EVERY 8 DAYS;?
     Route: 058
     Dates: start: 20190211, end: 20191021

REACTIONS (1)
  - Death [None]

NARRATIVE: CASE EVENT DATE: 20191021
